FAERS Safety Report 5615857-6 (Version None)
Quarter: 2008Q1

REPORT INFORMATION
  Report Type: 
  Country: None (occurrence: None)
  Receive Date: 20080206
  Receipt Date: 20080124
  Transmission Date: 20080703
  Serious: Yes (Other)
  Sender: FDA-Public Use
  Company Number: US-ELI_LILLY_AND_COMPANY-US200801005157

PATIENT
  Age: 63 Year
  Sex: Female

DRUGS (2)
  1. STRATTERA [Suspect]
     Indication: ATTENTION DEFICIT/HYPERACTIVITY DISORDER
     Dosage: 80 MG, DAILY (1/D)
     Dates: start: 20060101
  2. PLAVIX [Concomitant]

REACTIONS (5)
  - ALOPECIA [None]
  - CONTUSION [None]
  - HAEMORRHAGE [None]
  - SKIN ATROPHY [None]
  - STENT PLACEMENT [None]
